FAERS Safety Report 18368812 (Version 1)
Quarter: 2020Q4

REPORT INFORMATION
  Report Type: Spontaneous
  Country: CA (occurrence: CA)
  Receive Date: 20201010
  Receipt Date: 20201010
  Transmission Date: 20210114
  Serious: Yes (Other)
  Sender: FDA-Public Use
  Company Number: NVSC2020CA266124

PATIENT

DRUGS (1)
  1. TIMOLOL. [Suspect]
     Active Substance: TIMOLOL
     Indication: PRODUCT USED FOR UNKNOWN INDICATION
     Dosage: UNK
     Route: 065

REACTIONS (16)
  - Hallucination [Unknown]
  - Dry mouth [Unknown]
  - Cystoid macular oedema [Unknown]
  - Disorientation [Unknown]
  - Blood pressure increased [Unknown]
  - Nervousness [Unknown]
  - Hypertension [Unknown]
  - Anxiety [Unknown]
  - Nasal congestion [Unknown]
  - Somnolence [Unknown]
  - Dyspepsia [Unknown]
  - Macular oedema [Unknown]
  - Decreased appetite [Unknown]
  - Retroperitoneal fibrosis [Unknown]
  - Confusional state [Unknown]
  - Mental disorder [Unknown]
